FAERS Safety Report 6788302-5 (Version None)
Quarter: 2010Q2

REPORT INFORMATION
  Report Type: 
  Country: None (occurrence: None)
  Receive Date: 20100623
  Receipt Date: 20080409
  Transmission Date: 20101027
  Serious: No
  Sender: FDA-Public Use
  Company Number: US-PFIZER INC-2008012233

PATIENT
  Sex: Female
  Weight: 74.84 kg

DRUGS (1)
  1. GEODON [Suspect]
     Indication: BIPOLAR DISORDER
     Route: 048
     Dates: start: 20070920

REACTIONS (7)
  - BRUXISM [None]
  - DECREASED APPETITE [None]
  - ENERGY INCREASED [None]
  - MALAISE [None]
  - NAUSEA [None]
  - NEURALGIA [None]
  - TOOTHACHE [None]
